FAERS Safety Report 10090413 (Version 2)
Quarter: 2014Q2

REPORT INFORMATION
  Report Type: Spontaneous
  Country: US (occurrence: US)
  Receive Date: 20140421
  Receipt Date: 20140423
  Transmission Date: 20141212
  Serious: Yes (Hospitalization)
  Sender: FDA-Public Use
  Company Number: US-BAYER-2014-056391

PATIENT
  Age: 26 Year
  Sex: Female

DRUGS (6)
  1. OCELLA [Suspect]
     Dosage: UNK
  2. YASMIN [Suspect]
     Indication: DYSMENORRHOEA
  3. AZITHROMYCIN [Concomitant]
     Indication: RESPIRATORY TRACT INFECTION
     Dosage: UNK
     Dates: start: 20121009
  4. STEROID ANTIBACTERIALS [Concomitant]
     Indication: RESPIRATORY TRACT INFECTION
     Dosage: UNK
     Dates: start: 20121009
  5. IBUPROFEN [Concomitant]
     Indication: PAIN
  6. MULTIVITAMIN [Concomitant]

REACTIONS (1)
  - Pulmonary embolism [None]
